FAERS Safety Report 21265089 (Version 1)
Quarter: 2022Q3

REPORT INFORMATION
  Report Type: Spontaneous
  Country: US (occurrence: None)
  Receive Date: 20220826
  Receipt Date: 20220826
  Transmission Date: 20221026
  Serious: Yes (unspecified)
  Sender: FDA-Public Use
  Company Number: None

PATIENT
  Age: 45 Year
  Sex: Female
  Weight: 74.25 kg

DRUGS (13)
  1. LATUDA [Suspect]
     Active Substance: LURASIDONE HYDROCHLORIDE
     Indication: Affective disorder
     Dosage: OTHER QUANTITY : 1 TABLET(S);?FREQUENCY : AT BEDTIME;?
     Route: 048
  2. LOSARTAN [Concomitant]
  3. NORVASC [Concomitant]
  4. Protonix [Concomitant]
  5. LITHIUM [Concomitant]
     Active Substance: LITHIUM
  6. LAMICTAL [Concomitant]
  7. TRAZODONE [Concomitant]
     Active Substance: TRAZODONE HYDROCHLORIDE
  8. Multivitamin [Concomitant]
  9. Prebiotic [Concomitant]
  10. Probiotic [Concomitant]
  11. D-MANNOSE [Concomitant]
  12. CALCIUM [Concomitant]
  13. VITAMIN D3 [Concomitant]
     Active Substance: CHOLECALCIFEROL

REACTIONS (3)
  - Burning sensation mucosal [None]
  - Tardive dyskinesia [None]
  - Dyskinesia [None]

NARRATIVE: CASE EVENT DATE: 20210801
